FAERS Safety Report 7338717-1 (Version None)
Quarter: 2011Q1

REPORT INFORMATION
  Report Type: 
  Country: None (occurrence: None)
  Receive Date: 20110308
  Receipt Date: 20110228
  Transmission Date: 20110831
  Serious: Yes (Hospitalization, Other)
  Sender: FDA-Public Use
  Company Number: B0699936A

PATIENT
  Age: 67 Year
  Sex: Male

DRUGS (6)
  1. DOXAZOSIN [Concomitant]
  2. DUPHALAC [Concomitant]
  3. TRAMADOL [Concomitant]
  4. DUODART [Suspect]
     Route: 048
     Dates: start: 20110107, end: 20110101
  5. SIMVASTATIN [Concomitant]
  6. LOBIVON [Concomitant]

REACTIONS (3)
  - HYPERSENSITIVITY [None]
  - ANGIOEDEMA [None]
  - ASTHMATIC CRISIS [None]
